FAERS Safety Report 23854118 (Version 2)
Quarter: 2024Q2

REPORT INFORMATION
  Report Type: Spontaneous
  Country: US (occurrence: US)
  Receive Date: 20240514
  Receipt Date: 20240517
  Transmission Date: 20240716
  Serious: No
  Sender: FDA-Public Use
  Company Number: US-ABBVIE-5760094

PATIENT
  Sex: Male

DRUGS (1)
  1. NAMENDA [Suspect]
     Active Substance: MEMANTINE HYDROCHLORIDE
     Indication: Migraine
     Dosage: FORM STRENGTH;  2MG/ML SOL
     Route: 048

REACTIONS (2)
  - Off label use [Unknown]
  - Adverse drug reaction [Unknown]
